FAERS Safety Report 4480723-9 (Version None)
Quarter: 2004Q4

REPORT INFORMATION
  Report Type: 
  Country: None (occurrence: None)
  Receive Date: 20041019
  Receipt Date: 20040309
  Transmission Date: 20050328
  Serious: Yes (Life-Threatening, Hospitalization)
  Sender: FDA-Public Use
  Company Number: 12528790

PATIENT
  Age: 38 Year
  Sex: Male

DRUGS (9)
  1. SUSTIVA [Suspect]
     Indication: HIV INFECTION
     Dosage: 600 MILLIGRAM 1 DAY ORAL
     Route: 048
     Dates: start: 20040106
  2. KALETRA [Suspect]
     Indication: HIV INFECTION
     Dosage: 4 DOSAGE FORM 2/1 DAY ORAL
     Route: 048
     Dates: start: 20040106
  3. METHADONE HCL [Concomitant]
  4. MORPHINE SULFATE [Concomitant]
  5. NEURONTIN [Concomitant]
  6. CELEXA [Concomitant]
  7. FOLIC ACID [Concomitant]
  8. VITAMIN B1 (VITAMIN B1) [Concomitant]
  9. CENTRUM (VITAMINS NOS) [Concomitant]

REACTIONS (2)
  - RASH [None]
  - THROMBOCYTOPENIA [None]
